FAERS Safety Report 16640650 (Version 1)
Quarter: 2019Q3

REPORT INFORMATION
  Report Type: Spontaneous
  Country: US (occurrence: US)
  Receive Date: 20190729
  Receipt Date: 20190729
  Transmission Date: 20191004
  Serious: Yes (Other)
  Sender: FDA-Public Use
  Company Number: US-STRIDES ARCOLAB LIMITED-2018SP009722

PATIENT
  Age: 76 Year

DRUGS (1)
  1. MYCOPHENOLATE MOFETIL. [Suspect]
     Active Substance: MYCOPHENOLATE MOFETIL
     Indication: MYASTHENIA GRAVIS
     Dosage: UNK
     Route: 065

REACTIONS (7)
  - Dysmetria [Unknown]
  - Hemiparesis [Unknown]
  - Balance disorder [Unknown]
  - Alien limb syndrome [Unknown]
  - Asthenia [Unknown]
  - Non-Hodgkin^s lymphoma [Unknown]
  - Off label use [Unknown]
